FAERS Safety Report 20952863 (Version 1)
Quarter: 2022Q2

REPORT INFORMATION
  Report Type: Other
  Country: US (occurrence: US)
  Receive Date: 20220613
  Receipt Date: 20220613
  Transmission Date: 20220720
  Serious: No
  Sender: FDA-Public Use
  Company Number: US-SLATE RUN PHARMACEUTICALS-22US001071

PATIENT

DRUGS (2)
  1. BUPROPION HYDROCHLORIDE [Suspect]
     Active Substance: BUPROPION HYDROCHLORIDE
     Indication: Depression
     Dosage: UNK
     Dates: start: 202112
  2. BUPROPION HYDROCHLORIDE [Concomitant]
     Active Substance: BUPROPION HYDROCHLORIDE
     Indication: Depression
     Dosage: UNK
     Dates: end: 202112

REACTIONS (8)
  - Product substitution issue [Unknown]
  - Stress [Unknown]
  - Feeling abnormal [Unknown]
  - Apathy [Unknown]
  - Eating disorder [Unknown]
  - Irritability [Unknown]
  - Depression [Unknown]
  - Headache [Unknown]
